FAERS Safety Report 6544085-5 (Version None)
Quarter: 2010Q1

REPORT INFORMATION
  Report Type: 
  Country: None (occurrence: None)
  Receive Date: 20100120
  Receipt Date: 20100112
  Transmission Date: 20100710
  Serious: No
  Sender: FDA-Public Use
  Company Number: US-B.I. PHARMACEUTICALS,INC./RIDGEFIELD-2010-BP-00369BP

PATIENT
  Age: 79 Year
  Sex: Female

DRUGS (4)
  1. MICARDIS [Suspect]
     Indication: HYPERTENSION
     Dosage: 40 MG
     Route: 048
     Dates: start: 20090701, end: 20091001
  2. MICARDIS [Suspect]
     Dosage: 20 MG
     Route: 048
     Dates: start: 20091001
  3. ASPIRIN [Suspect]
     Indication: ROUTINE HEALTH MAINTENANCE
  4. XANAX [Concomitant]
     Indication: SLEEP DISORDER

REACTIONS (2)
  - HYPOTENSION [None]
  - WOUND HAEMORRHAGE [None]
